FAERS Safety Report 18057841 (Version 1)
Quarter: 2020Q3

REPORT INFORMATION
  Report Type: Spontaneous
  Country: FR (occurrence: FR)
  Receive Date: 20200723
  Receipt Date: 20200723
  Transmission Date: 20201103
  Serious: Yes (Hospitalization)
  Sender: FDA-Public Use
  Company Number: FR-TEVA-2020-FR-1803632

PATIENT
  Age: 77 Year
  Sex: Male
  Weight: 75 kg

DRUGS (19)
  1. EMEND 80 MG, GELULE [Concomitant]
     Active Substance: APREPITANT
     Dosage: 1 DOSAGE FORMS
     Route: 048
     Dates: start: 20200514, end: 20200520
  2. OXAZEPAM. [Concomitant]
     Active Substance: OXAZEPAM
     Dates: start: 202005
  3. HALDOL [Concomitant]
     Active Substance: HALOPERIDOL
  4. WELLVONE [Concomitant]
     Active Substance: ATOVAQUONE
  5. RITUXIMAB ((MAMMIFERE/HAMSTER/CELLULES CHO)) [Concomitant]
     Active Substance: RITUXIMAB
     Dates: start: 20200514
  6. ZARZIO [Concomitant]
     Active Substance: FILGRASTIM
     Dosage: 1 DOSAGE FORMS
     Route: 058
     Dates: start: 20200520, end: 20200522
  7. NATULAN [Concomitant]
     Active Substance: PROCARBAZINE HYDROCHLORIDE
     Dosage: 4 DOSAGE FORMS
     Route: 048
     Dates: start: 20200514, end: 20200520
  8. VALACICLOVIR [Concomitant]
     Active Substance: VALACYCLOVIR HYDROCHLORIDE
  9. LOXAPAC [Concomitant]
     Active Substance: LOXAPINE
     Dates: start: 202005
  10. ACIDE FOLIQUE [Concomitant]
     Active Substance: FOLIC ACID
     Dates: start: 202005
  11. SULFATE DE VINCRISTINE [Concomitant]
     Active Substance: VINCRISTINE SULFATE
     Indication: CENTRAL NERVOUS SYSTEM LYMPHOMA
     Route: 042
     Dates: start: 20200603
  12. VANCOMYCINE [Concomitant]
     Active Substance: VANCOMYCIN
     Indication: INFECTION
     Route: 042
     Dates: start: 20200528, end: 20200602
  13. METHOTREXATE. [Suspect]
     Active Substance: METHOTREXATE
     Indication: CENTRAL NERVOUS SYSTEM LYMPHOMA
     Route: 042
     Dates: start: 20200603
  14. TOPALGIC 50 MG, GELULE [Concomitant]
     Active Substance: TRAMADOL HYDROCHLORIDE
  15. TIAPRIDAL [Concomitant]
     Active Substance: TIAPRIDE HYDROCHLORIDE
  16. METHYLPREDNISOLONE. [Concomitant]
     Active Substance: METHYLPREDNISOLONE
     Route: 042
  17. DAPTOMYCINE [Concomitant]
     Active Substance: DAPTOMYCIN
     Route: 042
     Dates: start: 20200602, end: 20200608
  18. EUPANTOL [Concomitant]
     Active Substance: PANTOPRAZOLE SODIUM
  19. ZOPHREN 8 MG/4 ML, SOLUTION INJECTABLE EN SERINGUE PRE?REMPLIE [Concomitant]
     Active Substance: ONDANSETRON
     Dosage: 1 DOSAGE FORMS
     Dates: start: 20200514, end: 20200520

REACTIONS (2)
  - Overdose [Recovered/Resolved]
  - Acute kidney injury [Recovered/Resolved]

NARRATIVE: CASE EVENT DATE: 20200604
